FAERS Safety Report 24798243 (Version 1)
Quarter: 2025Q1

REPORT INFORMATION
  Report Type: Spontaneous
  Country: US (occurrence: US)
  Receive Date: 20250102
  Receipt Date: 20250102
  Transmission Date: 20250408
  Serious: Yes (Other)
  Sender: ROCHE
  Company Number: US-ROCHE-10000170024

PATIENT
  Age: 79 Year
  Sex: Male

DRUGS (4)
  1. ATEZOLIZUMAB [Suspect]
     Active Substance: ATEZOLIZUMAB
     Indication: Hepatocellular carcinoma
     Route: 065
  2. BEVACIZUMAB [Suspect]
     Active Substance: BEVACIZUMAB
     Indication: Hepatocellular carcinoma
     Route: 065
  3. REGORAFENIB [Suspect]
     Active Substance: REGORAFENIB
     Indication: Hepatocellular carcinoma
     Route: 065
  4. YTTRIUM CHLORIDE Y-90 [Suspect]
     Active Substance: YTTRIUM CHLORIDE Y-90
     Indication: Hepatocellular carcinoma
     Route: 065

REACTIONS (1)
  - Hepatocellular carcinoma [Unknown]
